FAERS Safety Report 15200276 (Version 1)
Quarter: 2018Q3

REPORT INFORMATION
  Report Type: Report from Study
  Country: CA (occurrence: CA)
  Receive Date: 20180726
  Receipt Date: 20180726
  Transmission Date: 20181010
  Serious: Yes (Other)
  Sender: FDA-Public Use
  Company Number: CA-BRISTOL-MYERS SQUIBB COMPANY-BMS-2017-091742

PATIENT
  Age: 73 Year
  Sex: Female

DRUGS (1)
  1. ABATACEPT [Suspect]
     Active Substance: ABATACEPT
     Indication: RHEUMATOID ARTHRITIS
     Dosage: 125 MG, QWK
     Route: 058
     Dates: start: 20160718

REACTIONS (5)
  - Intestinal obstruction [Recovering/Resolving]
  - Rhinitis [Unknown]
  - Pruritus [Unknown]
  - Lower respiratory tract infection [Unknown]
  - Aphthous ulcer [Recovered/Resolved]

NARRATIVE: CASE EVENT DATE: 20170911
